FAERS Safety Report 20377670 (Version 1)
Quarter: 2022Q1

REPORT INFORMATION
  Report Type: Report from Study
  Country: US (occurrence: US)
  Receive Date: 20220126
  Receipt Date: 20220126
  Transmission Date: 20220423
  Serious: Yes (Hospitalization, Other)
  Sender: FDA-Public Use
  Company Number: US-BIOVITRUM-2021US9222

PATIENT
  Age: 12 Year
  Sex: Female

DRUGS (1)
  1. KINERET [Suspect]
     Active Substance: ANAKINRA
     Indication: Multisystem inflammatory syndrome in children
     Route: 058
     Dates: start: 20211002

REACTIONS (10)
  - Adverse drug reaction [Unknown]
  - Thrombosis [Unknown]
  - Skin mass [Unknown]
  - Erythema [Unknown]
  - Dry skin [Unknown]
  - Alopecia [Unknown]
  - Stress [Unknown]
  - Pruritus [Unknown]
  - Injection site bruising [Unknown]
  - Off label use [Unknown]

NARRATIVE: CASE EVENT DATE: 20211002
